FAERS Safety Report 5637294-0 (Version None)
Quarter: 2008Q1

REPORT INFORMATION
  Report Type: 
  Country: None (occurrence: None)
  Receive Date: 20080225
  Receipt Date: 20080219
  Transmission Date: 20080703
  Serious: Yes (Hospitalization)
  Sender: FDA-Public Use
  Company Number: DE-AVENTIS-200810414DE

PATIENT
  Age: 72 Year
  Sex: Male

DRUGS (14)
  1. TAXOTERE [Suspect]
     Indication: GASTRIC CANCER
     Route: 041
     Dates: start: 20071204, end: 20071204
  2. FLUOROURACIL [Suspect]
     Indication: GASTRIC CANCER
     Route: 041
     Dates: start: 20071204, end: 20071204
  3. FOLINSAEURE [Suspect]
     Indication: GASTRIC CANCER
     Route: 041
     Dates: start: 20071204, end: 20071204
  4. OXALIPLATIN [Suspect]
     Indication: GASTRIC CANCER
     Route: 041
     Dates: start: 20071204, end: 20071204
  5. UNKNOWN DRUG [Concomitant]
     Dosage: DOSE: NOT REPORTED
  6. ATROVENT [Concomitant]
     Dosage: DOSE: NOT REPORTED
  7. GODAMED                            /00092801/ [Concomitant]
     Dosage: DOSE: NOT REPORTED
  8. SIMVASTATIN [Concomitant]
     Dosage: DOSE: NOT REPORTED
  9. CIPROBAY                           /00697202/ [Concomitant]
     Dosage: DOSE: NOT REPORTED
  10. TRAMADOL HCL [Concomitant]
     Dosage: DOSE: NOT REPORTED
  11. ZOLOFT [Concomitant]
     Dosage: DOSE: NOT REPORTED
  12. FENISTIL [Concomitant]
     Dosage: DOSE: NOT REPORTED
  13. FORTECORTIN                        /00016001/ [Concomitant]
     Dosage: DOSE: NOT REPORTED
  14. UNKNOWN DRUG [Concomitant]

REACTIONS (3)
  - DEPRESSION [None]
  - NAUSEA [None]
  - WEIGHT DECREASED [None]
